FAERS Safety Report 13127467 (Version 1)
Quarter: 2017Q1

REPORT INFORMATION
  Report Type: Spontaneous
  Country: US (occurrence: US)
  Receive Date: 20170118
  Receipt Date: 20170118
  Transmission Date: 20170428
  Serious: No
  Sender: FDA-Public Use
  Company Number: US-ELI_LILLY_AND_COMPANY-US201701003667

PATIENT
  Sex: Female

DRUGS (2)
  1. CLOBETASOL [Concomitant]
     Active Substance: CLOBETASOL
     Dosage: UNK, UNKNOWN
     Route: 065
  2. TALTZ [Suspect]
     Active Substance: IXEKIZUMAB
     Indication: PSORIASIS
     Dosage: UNK, 2/M
     Route: 065

REACTIONS (1)
  - Alopecia [Not Recovered/Not Resolved]
